FAERS Safety Report 4853107-9 (Version None)
Quarter: 2005Q4

REPORT INFORMATION
  Report Type: 
  Country: None (occurrence: None)
  Receive Date: 20051212
  Receipt Date: 20051129
  Transmission Date: 20060501
  Serious: Yes (Other)
  Sender: FDA-Public Use
  Company Number: HQWYE737729NOV05

PATIENT
  Age: 50 Year
  Sex: Female

DRUGS (1)
  1. PREMARIN [Suspect]
     Dosage: ORAL
     Route: 048
     Dates: start: 20030701, end: 20040201

REACTIONS (1)
  - LIVER DISORDER [None]
